FAERS Safety Report 13965345 (Version 1)
Quarter: 2017Q3

REPORT INFORMATION
  Report Type: Other
  Country: DK (occurrence: DK)
  Receive Date: 20170913
  Receipt Date: 20170913
  Transmission Date: 20171128
  Serious: Yes (Hospitalization)
  Sender: FDA-Public Use
  Company Number: DK-CELLTRION INC.-2017DK011987

PATIENT

DRUGS (4)
  1. REMSIMA [Suspect]
     Active Substance: INFLIXIMAB
     Indication: RHEUMATOID ARTHRITIS
     Dosage: 330 MG, INJECTION IN WEEKS 0,2, 6, 8. THEREAFTER INJECTION EVERY 8 WEEKS.
     Route: 042
     Dates: start: 20170623, end: 20170623
  2. PLAQUENIL [Concomitant]
     Active Substance: HYDROXYCHLOROQUINE SULFATE
     Indication: RHEUMATOID ARTHRITIS
     Dosage: UNK MG, UNK
     Route: 048
     Dates: end: 201708
  3. REMSIMA [Suspect]
     Active Substance: INFLIXIMAB
     Dosage: 330 MG, INJECTION IN WEEKS 0,2, 6, 8. THEREAFTER INJECTION EVERY 8 WEEKS.
     Route: 042
     Dates: start: 20170816, end: 20170816
  4. METHOTREXATE. [Concomitant]
     Active Substance: METHOTREXATE
     Indication: RHEUMATOID ARTHRITIS
     Dosage: UNK
     Dates: start: 20160513, end: 20170823

REACTIONS (13)
  - Adenocarcinoma gastric [Not Recovered/Not Resolved]
  - Retroperitoneal lymphadenopathy [Not Recovered/Not Resolved]
  - Alanine aminotransferase increased [Unknown]
  - Gastrointestinal wall thickening [Not Recovered/Not Resolved]
  - Renal failure [Not Recovered/Not Resolved]
  - Glomerular filtration rate decreased [Unknown]
  - Metastases to lung [Not Recovered/Not Resolved]
  - Gastric ulcer [Not Recovered/Not Resolved]
  - Lymphadenopathy mediastinal [Not Recovered/Not Resolved]
  - Abdominal pain upper [Not Recovered/Not Resolved]
  - Hydronephrosis [Not Recovered/Not Resolved]
  - Blood creatinine increased [Unknown]
  - C-reactive protein increased [Unknown]

NARRATIVE: CASE EVENT DATE: 20170624
